FAERS Safety Report 10883241 (Version 5)
Quarter: 2019Q4

REPORT INFORMATION
  Report Type: Report from Study
  Country: MX (occurrence: MX)
  Receive Date: 20150303
  Receipt Date: 20191118
  Transmission Date: 20200122
  Serious: Yes (Other)
  Sender: FDA-Public Use
  Company Number: PHHY2015MX024585

PATIENT
  Age: 45 Year
  Sex: Male
  Weight: 70 kg

DRUGS (3)
  1. RITUXIMAB. [Suspect]
     Active Substance: RITUXIMAB
     Indication: MULTIPLE SCLEROSIS RELAPSE
     Dosage: 1 DF, QW
     Route: 042
     Dates: start: 20191015
  2. GILENYA [Suspect]
     Active Substance: FINGOLIMOD HYDROCHLORIDE
     Indication: RELAPSING-REMITTING MULTIPLE SCLEROSIS
     Dosage: 0.5 MG, QD
     Route: 048
     Dates: start: 20120509, end: 201908
  3. OMEGA 3 FISH OIL                   /06852001/ [Concomitant]
     Indication: PRODUCT USED FOR UNKNOWN INDICATION
     Dosage: UNK
     Route: 065

REACTIONS (15)
  - Fatigue [Not Recovered/Not Resolved]
  - Nausea [Not Recovered/Not Resolved]
  - Multiple sclerosis relapse [Recovered/Resolved]
  - Muscular weakness [Recovering/Resolving]
  - Drug ineffective [Unknown]
  - Urinary incontinence [Not Recovered/Not Resolved]
  - Stress [Not Recovered/Not Resolved]
  - Mobility decreased [Not Recovered/Not Resolved]
  - Visual impairment [Not Recovered/Not Resolved]
  - Decreased appetite [Unknown]
  - Rash [Not Recovered/Not Resolved]
  - Intermittent claudication [Not Recovered/Not Resolved]
  - Neuritis [Not Recovered/Not Resolved]
  - Weight decreased [Unknown]
  - Optic neuritis [Not Recovered/Not Resolved]

NARRATIVE: CASE EVENT DATE: 2012
